FAERS Safety Report 5743843-4 (Version None)
Quarter: 2008Q2

REPORT INFORMATION
  Report Type: 
  Country: None (occurrence: None)
  Receive Date: 20080520
  Receipt Date: 20080509
  Transmission Date: 20081010
  Serious: Yes (Other)
  Sender: FDA-Public Use
  Company Number: BE-JNJFOC-20070805910

PATIENT
  Age: 43 Year
  Sex: Male
  Weight: 60 kg

DRUGS (4)
  1. REMICADE [Suspect]
     Route: 042
  2. REMICADE [Suspect]
     Indication: COLITIS ULCERATIVE
     Dosage: 2 INFUSIONS
     Route: 042
  3. IMURAN [Concomitant]
  4. BUDENOFALK [Concomitant]

REACTIONS (1)
  - LYMPH NODE TUBERCULOSIS [None]
